FAERS Safety Report 4570130-2 (Version None)
Quarter: 2005Q1

REPORT INFORMATION
  Report Type: 
  Country: None (occurrence: None)
  Receive Date: 20050131
  Receipt Date: 20050121
  Transmission Date: 20050727
  Serious: No
  Sender: FDA-Public Use
  Company Number: 211917

PATIENT
  Age: 5 Year
  Sex: Female
  Weight: 14.9 kg

DRUGS (1)
  1. NUTROPIN AQ [Suspect]
     Indication: OPTIC NERVE HYPOPLASIA
     Dosage: 0.8 MG, 6/WEEK, SUBCUTANEOUS
     Route: 058
     Dates: start: 20020806

REACTIONS (2)
  - OBSTRUCTION [None]
  - TONSILLAR HYPERTROPHY [None]
